FAERS Safety Report 4394889-2 (Version None)
Quarter: 2004Q3

REPORT INFORMATION
  Report Type: 
  Country: None (occurrence: None)
  Receive Date: 20040706
  Receipt Date: 20040621
  Transmission Date: 20050211
  Serious: Yes (Hospitalization, Other)
  Sender: FDA-Public Use
  Company Number: 235706

PATIENT
  Sex: Male
  Weight: 4.5 kg

DRUGS (4)
  1. NOVORAPID PENFILL 3ML (NOVORAPID PENFIL 3 ML) (INSULIN ASPART) SOLUTIO [Suspect]
     Indication: DIABETES MELLITUS INSULIN-DEPENDENT
     Dosage: INTRAUTERINE
     Route: 015
     Dates: start: 20030829
  2. NOVOLIN GE TORONTO PENFIL (INSULIN HUMAN) [Concomitant]
  3. CALCIUM (CALCIUM) [Concomitant]
  4. MULTIVITAMIN [Concomitant]

REACTIONS (5)
  - APGAR SCORE LOW [None]
  - DRUG EXPOSURE DURING PREGNANCY [None]
  - HYPOGLYCAEMIA NEONATAL [None]
  - LARGE FOR DATES BABY [None]
  - PREMATURE BABY [None]
